FAERS Safety Report 7064767-9 (Version None)
Quarter: 2010Q4

REPORT INFORMATION
  Report Type: 
  Country: None (occurrence: None)
  Receive Date: 20101027
  Receipt Date: 19790906
  Transmission Date: 20110411
  Serious: Yes (Death)
  Sender: FDA-Public Use
  Company Number: DE-ROCHE-790308076001

PATIENT
  Age: 84 Year
  Sex: Female

DRUGS (6)
  1. VALIUM [Suspect]
     Indication: SEDATION
     Route: 042
     Dates: start: 19780812, end: 19780817
  2. BRISERIN [Concomitant]
     Route: 048
     Dates: start: 19781213
  3. DIGOXIN [Concomitant]
     Route: 048
     Dates: start: 19781213
  4. IMMUNOCILLIN [Concomitant]
     Route: 048
     Dates: start: 19781215
  5. SAGITTAMID [Concomitant]
     Route: 048
     Dates: start: 19781213
  6. COLFARIT [Concomitant]
     Route: 048
     Dates: start: 19781201

REACTIONS (2)
  - DEATH [None]
  - THROMBOPHLEBITIS [None]
